FAERS Safety Report 18524026 (Version 3)
Quarter: 2020Q4

REPORT INFORMATION
  Report Type: Spontaneous
  Country: EE (occurrence: EE)
  Receive Date: 20201119
  Receipt Date: 20201202
  Transmission Date: 20210114
  Serious: Yes (Disabling, Other)
  Sender: FDA-Public Use
  Company Number: EE-ABBVIE-20K-221-3650782-00

PATIENT
  Age: 17 Year
  Sex: Male
  Weight: 60 kg

DRUGS (1)
  1. HUMIRA [Suspect]
     Active Substance: ADALIMUMAB
     Indication: JUVENILE IDIOPATHIC ARTHRITIS
     Route: 058
     Dates: start: 20151221, end: 20200908

REACTIONS (12)
  - Acne [Recovered/Resolved]
  - Arthralgia [Recovered/Resolved]
  - T-cell lymphoma [Unknown]
  - Skin hypertrophy [Unknown]
  - Musculoskeletal stiffness [Unknown]
  - Skin disorder [Recovered/Resolved]
  - Skin disorder [Unknown]
  - Pustular psoriasis [Unknown]
  - Metastatic lymphoma [Unknown]
  - Arthralgia [Unknown]
  - Skin lesion [Unknown]
  - Acne [Unknown]

NARRATIVE: CASE EVENT DATE: 201512
